FAERS Safety Report 5898439-0 (Version None)
Quarter: 2008Q3

REPORT INFORMATION
  Report Type: 
  Country: None (occurrence: None)
  Receive Date: 20080925
  Receipt Date: 20071120
  Transmission Date: 20090109
  Serious: No
  Sender: FDA-Public Use
  Company Number: A0691479A

PATIENT

DRUGS (2)
  1. BUPROPION HYDROCHLORIDE [Suspect]
     Indication: MAJOR DEPRESSION
     Dosage: 300MG IN THE MORNING
     Route: 048
  2. ALPRAZOLAM [Concomitant]

REACTIONS (8)
  - ACTIVITIES OF DAILY LIVING IMPAIRED [None]
  - ADVERSE EVENT [None]
  - ASTHENIA [None]
  - CRYING [None]
  - DEPRESSED MOOD [None]
  - DRUG INEFFECTIVE [None]
  - HEART RATE INCREASED [None]
  - MENTAL IMPAIRMENT [None]
